FAERS Safety Report 5324900-3 (Version None)
Quarter: 2007Q2

REPORT INFORMATION
  Report Type: 
  Country: None (occurrence: None)
  Receive Date: 20070509
  Receipt Date: 20070426
  Transmission Date: 20071010
  Serious: Yes (Hospitalization)
  Sender: FDA-Public Use
  Company Number: 2007PV032867

PATIENT
  Age: 63 Year
  Sex: Male

DRUGS (3)
  1. SYMLIN [Suspect]
     Indication: DIABETES MELLITUS
     Dosage: 120 MCG;  ;SC
     Route: 058
  2. INSULIN [Suspect]
     Indication: DIABETES MELLITUS
     Dosage: ; SC
     Route: 058
  3. NPH INSULIN [Concomitant]

REACTIONS (2)
  - CELLULITIS [None]
  - WRONG TECHNIQUE IN DRUG USAGE PROCESS [None]
